FAERS Safety Report 15101360 (Version 4)
Quarter: 2025Q3

REPORT INFORMATION
  Report Type: Report from Study
  Country: EU (occurrence: EU)
  Receive Date: 20180703
  Receipt Date: 20250708
  Transmission Date: 20251021
  Serious: Yes (Disabling, Congenital Anomaly, Other)
  Sender: AUROBINDO
  Company Number: None

PATIENT
  Age: 1 Day
  Sex: Female
  Weight: 1.95 kg

DRUGS (10)
  1. FLUVASTATIN [Suspect]
     Active Substance: FLUVASTATIN SODIUM
     Indication: Product used for unknown indication
     Route: 064
  2. RAMIPRIL [Suspect]
     Active Substance: RAMIPRIL
     Indication: Product used for unknown indication
     Route: 064
  3. RAMIPRIL [Suspect]
     Active Substance: RAMIPRIL
     Route: 048
  4. OMEPRAZOLE [Suspect]
     Active Substance: OMEPRAZOLE
     Indication: Product used for unknown indication
     Route: 064
  5. TORSEMIDE [Suspect]
     Active Substance: TORSEMIDE
     Indication: Product used for unknown indication
     Route: 064
  6. PREDNISOLONE [Suspect]
     Active Substance: PREDNISOLONE
     Indication: Product used for unknown indication
     Route: 064
  7. FUROSEMIDE [Suspect]
     Active Substance: FUROSEMIDE
     Indication: Product used for unknown indication
     Route: 064
  8. TACROLIMUS [Suspect]
     Active Substance: TACROLIMUS
     Indication: Product used for unknown indication
     Dosage: 2 MILLIGRAM, ONCE A DAY, UNK UNK, UNKNOWN FREQ. (0-19+6- GW)DAILY DOSE
     Route: 064
  9. CALCIUM CARBONATE\CHOLECALCIFEROL [Suspect]
     Active Substance: CALCIUM CARBONATE\CHOLECALCIFEROL
     Indication: Product used for unknown indication
     Dosage: 10 MICROGRAM, ONCE A DAY (DAILY DOSE: 20 ?G MICROGRAM(S) EVERY DAY)
     Route: 064
  10. FOLIC ACID [Suspect]
     Active Substance: FOLIC ACID
     Indication: Product used for unknown indication
     Dosage: 5 MILLIGRAM, ONCE A DAY
     Route: 064

REACTIONS (14)
  - Dysmorphism [Unknown]
  - Talipes [Unknown]
  - Congenital oral malformation [Unknown]
  - Developmental hip dysplasia [Unknown]
  - Limb hypoplasia congenital [Unknown]
  - Limb reduction defect [Not Recovered/Not Resolved]
  - Cleft palate [Unknown]
  - Patent ductus arteriosus [Unknown]
  - Atrial septal defect [Unknown]
  - Neck deformity [Unknown]
  - Congenital aplasia [Unknown]
  - Premature baby [Recovering/Resolving]
  - Retrognathia [Unknown]
  - Foetal exposure during pregnancy [Unknown]

NARRATIVE: CASE EVENT DATE: 20080920
